FAERS Safety Report 5380936-8 (Version None)
Quarter: 2007Q3

REPORT INFORMATION
  Report Type: 
  Country: None (occurrence: None)
  Receive Date: 20070706
  Receipt Date: 20070706
  Transmission Date: 20080115
  Serious: Yes (Other)
  Sender: FDA-Public Use
  Company Number: DE-BRISTOL-MYERS SQUIBB COMPANY-13755491

PATIENT
  Age: 70 Year
  Sex: Female

DRUGS (4)
  1. LYSODREN [Suspect]
     Indication: ADRENOCORTICAL CARCINOMA
     Route: 048
     Dates: start: 20060819
  2. HYDROCORTISONE [Concomitant]
     Dates: start: 20060901
  3. LEVOTHYROXINE SODIUM [Concomitant]
  4. RAMIPRIL [Concomitant]

REACTIONS (1)
  - LEUKOPENIA [None]
